FAERS Safety Report 8244593-5 (Version None)
Quarter: 2012Q1

REPORT INFORMATION
  Report Type: 
  Country: None (occurrence: None)
  Receive Date: 20120329
  Receipt Date: 20120315
  Transmission Date: 20120608
  Serious: Yes (Death, Other)
  Sender: FDA-Public Use
  Company Number: ES-CELGENEUS-144-21880-12031819

PATIENT

DRUGS (3)
  1. ASPIRIN [Concomitant]
     Indication: THROMBOSIS PROPHYLAXIS
     Dosage: 100 MILLIGRAM
     Route: 065
     Dates: start: 20000101, end: 20110101
  2. DEXAMETHASONE [Concomitant]
     Indication: MULTIPLE MYELOMA
     Dosage: 40 MILLIGRAM
     Route: 065
     Dates: start: 20000101, end: 20110101
  3. REVLIMID [Suspect]
     Indication: MULTIPLE MYELOMA
     Dosage: 25 MILLIGRAM
     Route: 048
     Dates: start: 20000101, end: 20110101

REACTIONS (6)
  - PANCYTOPENIA [None]
  - MULTIPLE MYELOMA [None]
  - PULMONARY EMBOLISM [None]
  - THROMBOCYTOPENIA [None]
  - NEUTROPENIA [None]
  - RASH [None]
